FAERS Safety Report 24114439 (Version 5)
Quarter: 2024Q4

REPORT INFORMATION
  Report Type: Report from Study
  Country: CN (occurrence: CN)
  Receive Date: 20240720
  Receipt Date: 20241004
  Transmission Date: 20250115
  Serious: Yes (Hospitalization, Other)
  Sender: RANBAXY
  Company Number: CN-SUN PHARMACEUTICAL INDUSTRIES LTD-2024R1-454228

PATIENT
  Age: 85 Year
  Sex: Female
  Weight: 50 kg

DRUGS (3)
  1. SONIDEGIB [Suspect]
     Active Substance: SONIDEGIB
     Indication: Basal cell carcinoma
     Dosage: 200 MILLIGRAM, QD
     Route: 048
     Dates: start: 20240523, end: 20240626
  2. LEVOFLOXACIN [Concomitant]
     Active Substance: LEVOFLOXACIN
     Indication: Eye inflammation
     Dosage: 15 MILLIGRAM, QID
     Route: 031
     Dates: start: 20240508
  3. Pralofloxacin [Concomitant]
     Indication: Eye inflammation
     Dosage: 5 MILLIGRAM, QID
     Route: 031
     Dates: start: 20240508

REACTIONS (3)
  - Arteriosclerosis coronary artery [Not Recovered/Not Resolved]
  - Drug-induced liver injury [Recovering/Resolving]
  - Muscle injury [Recovering/Resolving]

NARRATIVE: CASE EVENT DATE: 20240626
